FAERS Safety Report 12685556 (Version 1)
Quarter: 2016Q3

REPORT INFORMATION
  Report Type: Spontaneous
  Country: US (occurrence: US)
  Receive Date: 20160825
  Receipt Date: 20160825
  Transmission Date: 20161109
  Serious: No
  Sender: FDA-Public Use
  Company Number: US-FRI-1000085316

PATIENT
  Age: 51 Year
  Sex: Female
  Weight: 61.2 kg

DRUGS (7)
  1. LEXAPRO [Suspect]
     Active Substance: ESCITALOPRAM OXALATE
     Indication: DEPRESSION
     Dosage: 10MG
     Route: 048
     Dates: start: 201603
  2. BACLOFEN. [Concomitant]
     Active Substance: BACLOFEN
  3. AMBIEN [Concomitant]
     Active Substance: ZOLPIDEM TARTRATE
  4. XARELTO [Concomitant]
     Active Substance: RIVAROXABAN
  5. LEXAPRO [Suspect]
     Active Substance: ESCITALOPRAM OXALATE
     Dosage: 5MG
     Route: 048
     Dates: start: 201603
  6. ATIVAN [Concomitant]
     Active Substance: LORAZEPAM
  7. VITAMIN D [Concomitant]
     Active Substance: CHOLECALCIFEROL
     Dates: start: 201603

REACTIONS (1)
  - Heart rate increased [Recovered/Resolved]

NARRATIVE: CASE EVENT DATE: 201603
